FAERS Safety Report 9208305 (Version 2)
Quarter: 2013Q2

REPORT INFORMATION
  Report Type: Report from Study
  Country: US (occurrence: US)
  Receive Date: 20130403
  Receipt Date: 20130502
  Transmission Date: 20140414
  Serious: Yes (Other)
  Sender: FDA-Public Use
  Company Number: US-ROCHE-1024486

PATIENT
  Age: 34 Year
  Sex: Female
  Weight: 68.1 kg

DRUGS (5)
  1. LORATADINE [Concomitant]
     Indication: IDIOPATHIC URTICARIA
     Route: 048
     Dates: start: 20110715, end: 20120216
  2. LO/OVRAL [Concomitant]
     Dosage: 1 TABLET
     Route: 048
     Dates: start: 201107
  3. PREDNISONE [Concomitant]
     Route: 048
     Dates: start: 20111222, end: 20111223
  4. BENADRYL [Concomitant]
     Route: 048
  5. OMALIZUMAB [Suspect]
     Indication: CHRONIC SPONTANEOUS URTICARIA
     Dosage: 2 INJECTIONS PER DOSE, LAST DOSE PRIOR TO SAE: 20/DEC/2011
     Route: 058
     Dates: start: 20110802, end: 20111220

REACTIONS (2)
  - Urticaria [Recovered/Resolved]
  - Anaphylactic reaction [Unknown]
